FAERS Safety Report 7474577-6 (Version None)
Quarter: 2011Q1

REPORT INFORMATION
  Report Type: 
  Country: None (occurrence: None)
  Receive Date: 20110302
  Receipt Date: 20101118
  Transmission Date: 20110831
  Serious: Yes (Hospitalization, Other)
  Sender: FDA-Public Use
  Company Number: 163-21880-10071148

PATIENT
  Age: 64 Year
  Sex: Male

DRUGS (7)
  1. MORPHINE [Concomitant]
  2. NORCO [Concomitant]
  3. PRILOSEC [Concomitant]
  4. REVLIMID [Suspect]
     Indication: MULTIPLE MYELOMA
     Dosage: 25 MG, 1 IN 1 D, PO; 25 MG, 1 IN 1 D, PO
     Route: 048
     Dates: start: 20091113, end: 20091123
  5. REVLIMID [Suspect]
     Indication: MULTIPLE MYELOMA
     Dosage: 25 MG, 1 IN 1 D, PO; 25 MG, 1 IN 1 D, PO
     Route: 048
     Dates: start: 20100713
  6. DECADRON [Concomitant]
  7. ZOMETA [Concomitant]

REACTIONS (5)
  - LEUKOCYTOSIS [None]
  - PULMONARY EMBOLISM [None]
  - DEEP VEIN THROMBOSIS [None]
  - TACHYCARDIA [None]
  - HYPOKALAEMIA [None]
